FAERS Safety Report 8540312-3 (Version None)
Quarter: 2012Q3

REPORT INFORMATION
  Report Type: 
  Country: None (occurrence: None)
  Receive Date: 20120726
  Receipt Date: 20120723
  Transmission Date: 20120928
  Serious: Yes (Other)
  Sender: FDA-Public Use
  Company Number: GB-AMGEN-GBRCT2012044961

PATIENT
  Age: 83 Year
  Sex: Female

DRUGS (1)
  1. DENOSUMAB [Suspect]
     Indication: OSTEOPOROSIS POSTMENOPAUSAL
     Dosage: 60 MG, Q6MO
     Route: 058
     Dates: start: 20080220, end: 20120220

REACTIONS (1)
  - OSTEONECROSIS OF JAW [None]
